FAERS Safety Report 11449925 (Version 1)
Quarter: 2015Q3

REPORT INFORMATION
  Report Type: Spontaneous
  Country: US (occurrence: US)
  Receive Date: 20150903
  Receipt Date: 20150903
  Transmission Date: 20151125
  Serious: No
  Sender: FDA-Public Use
  Company Number: US-ROCHE-1079091

PATIENT
  Sex: Female

DRUGS (3)
  1. TELAPREVIR [Suspect]
     Active Substance: TELAPREVIR
     Indication: CHRONIC HEPATITIS C
     Route: 065
     Dates: start: 20120607
  2. PEGASYS [Suspect]
     Active Substance: PEGINTERFERON ALFA-2A
     Indication: CHRONIC HEPATITIS C
     Dosage: DATE OF LAST DOSE ADMINISTERED : 28/JUN/2012
     Route: 065
     Dates: start: 20120607
  3. RIBASPHERE [Suspect]
     Active Substance: RIBAVIRIN
     Indication: CHRONIC HEPATITIS C
     Route: 065
     Dates: start: 20120607

REACTIONS (6)
  - Malaise [Unknown]
  - Tremor [Unknown]
  - Hypoaesthesia [Unknown]
  - Skin burning sensation [Unknown]
  - Product taste abnormal [Unknown]
  - Joint range of motion decreased [Unknown]
